FAERS Safety Report 22116594 (Version 1)
Quarter: 2023Q1

REPORT INFORMATION
  Report Type: Spontaneous
  Country: US (occurrence: US)
  Receive Date: 20230320
  Receipt Date: 20230320
  Transmission Date: 20230417
  Serious: No
  Sender: FDA-Public Use
  Company Number: US-PFIZER INC-202300112357

PATIENT
  Age: 55 Year
  Sex: Male
  Weight: 110.22 kg

DRUGS (1)
  1. NICOTROL [Suspect]
     Active Substance: NICOTINE
     Indication: Smoking cessation therapy
     Dosage: UP TO 6 CARTRIDGES DAILY AS NEEDED. HE WAS USING THAT OR MORE THAN THAT

REACTIONS (1)
  - Tobacco user [Not Recovered/Not Resolved]

NARRATIVE: CASE EVENT DATE: 20230101
